FAERS Safety Report 12079072 (Version 2)
Quarter: 2016Q1

REPORT INFORMATION
  Report Type: Spontaneous
  Country: US (occurrence: US)
  Receive Date: 20160216
  Receipt Date: 20160219
  Transmission Date: 20160526
  Serious: No
  Sender: FDA-Public Use
  Company Number: US-PFIZER INC-2016064211

PATIENT
  Age: 81 Year
  Sex: Female
  Weight: 52.16 kg

DRUGS (2)
  1. ADVIL [Suspect]
     Active Substance: IBUPROFEN
     Indication: PRURITUS
     Dosage: 200 MG, 6X/DAY  (6 IN 24HR)
     Dates: start: 2015
  2. ADVIL [Suspect]
     Active Substance: IBUPROFEN
     Indication: PRURITUS
     Dosage: 200 MG, 6X/DAY  (6 IN 24HR)
     Dates: start: 2015

REACTIONS (8)
  - Blood viscosity decreased [Unknown]
  - Skin haemorrhage [Unknown]
  - Contusion [Unknown]
  - Pre-existing condition improved [Unknown]
  - Nausea [Unknown]
  - Therapeutic response unexpected [Unknown]
  - Product use issue [Unknown]
  - Skin atrophy [Unknown]
